FAERS Safety Report 18039680 (Version 1)
Quarter: 2020Q3

REPORT INFORMATION
  Report Type: Spontaneous
  Country: ES (occurrence: ES)
  Receive Date: 20200717
  Receipt Date: 20200717
  Transmission Date: 20201103
  Serious: Yes (Death)
  Sender: FDA-Public Use
  Company Number: NVSC2020ES199159

PATIENT
  Age: 65 Year
  Sex: Female

DRUGS (4)
  1. FULVESTRANT. [Suspect]
     Active Substance: FULVESTRANT
     Indication: BREAST CANCER METASTATIC
     Dosage: 500 MG (EVERY 28 DAYS FOR FOUR WEEKS AFTER LOADING THE DOSE)
     Route: 030
     Dates: start: 201711
  2. PALBOCICLIB [Suspect]
     Active Substance: PALBOCICLIB
     Dosage: 100 MG, QD
     Route: 048
  3. PALBOCICLIB [Suspect]
     Active Substance: PALBOCICLIB
     Indication: BREAST CANCER METASTATIC
     Dosage: 125 MG/DAY X 21 DAYS EVERY 28 DAYS
     Route: 048
     Dates: start: 201711
  4. ZOLEDRONIC ACID. [Suspect]
     Active Substance: ZOLEDRONIC ACID
     Indication: BREAST CANCER METASTATIC
     Dosage: 4 MG, EVERY 3 MONTHS
     Route: 042
     Dates: start: 201407

REACTIONS (3)
  - Malignant neoplasm progression [Fatal]
  - Asthenia [Fatal]
  - Neutropenia [Fatal]

NARRATIVE: CASE EVENT DATE: 201909
